FAERS Safety Report 18274489 (Version 1)
Quarter: 2020Q3

REPORT INFORMATION
  Report Type: Spontaneous
  Country: DE (occurrence: DE)
  Receive Date: 20200916
  Receipt Date: 20200916
  Transmission Date: 20201103
  Serious: Yes (Hospitalization, Other)
  Sender: FDA-Public Use
  Company Number: DE-PFIZER INC-2020354982

PATIENT
  Age: 47 Year
  Sex: Male

DRUGS (2)
  1. DICLOFENAC [Suspect]
     Active Substance: DICLOFENAC
     Dosage: UNK, 1?0?1?0
  2. IBUPROFEN. [Suspect]
     Active Substance: IBUPROFEN
     Dosage: UNK, DISCONTINUED

REACTIONS (8)
  - Flatulence [Not Recovered/Not Resolved]
  - Duodenal ulcer [Unknown]
  - Gastric ulcer [Unknown]
  - Abdominal distension [Not Recovered/Not Resolved]
  - Abdominal pain [Not Recovered/Not Resolved]
  - Glomerular filtration rate decreased [Unknown]
  - Eructation [Not Recovered/Not Resolved]
  - Gastric mucosa erythema [Unknown]

NARRATIVE: CASE EVENT DATE: 20200727
